FAERS Safety Report 21820670 (Version 3)
Quarter: 2023Q1

REPORT INFORMATION
  Report Type: Report from Study
  Country: CA (occurrence: CA)
  Receive Date: 20230105
  Receipt Date: 20230310
  Transmission Date: 20230418
  Serious: Yes (Other)
  Sender: FDA-Public Use
  Company Number: CA-JNJFOC-20221265240

PATIENT
  Age: 45 Year
  Sex: Female

DRUGS (3)
  1. TREMFYA [Suspect]
     Active Substance: GUSELKUMAB
     Indication: Psoriatic arthropathy
     Route: 058
     Dates: start: 20220429
  2. TREMFYA [Suspect]
     Active Substance: GUSELKUMAB
     Route: 058
  3. CLARITHROMYCIN [Concomitant]
     Active Substance: CLARITHROMYCIN

REACTIONS (5)
  - Pneumonia [Unknown]
  - Parathyroid tumour [Recovered/Resolved]
  - Drug ineffective [Unknown]
  - Sinusitis [Unknown]
  - Respiratory tract infection [Unknown]

NARRATIVE: CASE EVENT DATE: 20221001
